FAERS Safety Report 25400825 (Version 1)
Quarter: 2025Q2

REPORT INFORMATION
  Report Type: Spontaneous
  Country: US (occurrence: None)
  Receive Date: 20250605
  Receipt Date: 20250605
  Transmission Date: 20250717
  Serious: Yes (Hospitalization)
  Sender: FDA-CTU
  Company Number: None

PATIENT
  Age: 37 Year
  Sex: Male
  Weight: 83.6 kg

DRUGS (2)
  1. XELODA [Suspect]
     Active Substance: CAPECITABINE
     Dates: end: 20250601
  2. ELOXATIN [Suspect]
     Active Substance: OXALIPLATIN
     Dates: end: 20250519

REACTIONS (7)
  - Viral infection [None]
  - Enterocolitis [None]
  - Blood sodium abnormal [None]
  - Blood potassium decreased [None]
  - Blood calcium decreased [None]
  - Blood bilirubin increased [None]
  - Sinus tachycardia [None]

NARRATIVE: CASE EVENT DATE: 20250601
